FAERS Safety Report 10687602 (Version 1)
Quarter: 2014Q4

REPORT INFORMATION
  Report Type: Spontaneous
  Country: IT (occurrence: None)
  Receive Date: 20141230
  Receipt Date: 20141230
  Transmission Date: 20150529
  Serious: Yes (Life-Threatening)
  Sender: FDA-Public Use
  Company Number: FK201406479

PATIENT
  Age: 73 Year
  Sex: Male
  Weight: 65 kg

DRUGS (2)
  1. IRINOTECAN [Suspect]
     Active Substance: IRINOTECAN
     Indication: COLON CANCER METASTATIC
     Dosage: TOTAL
     Route: 042
     Dates: start: 20141205
  2. CAPECITABINA MEDAC [Suspect]
     Active Substance: CAPECITABINE
     Indication: COLON CANCER METASTATIC
     Dosage: CYCLICAL?
     Route: 048
     Dates: start: 20141206, end: 20141213

REACTIONS (3)
  - Pancytopenia [None]
  - Acute kidney injury [None]
  - Hyperglycaemia [None]

NARRATIVE: CASE EVENT DATE: 20141215
